FAERS Safety Report 6421590-3 (Version None)
Quarter: 2009Q4

REPORT INFORMATION
  Report Type: 
  Country: None (occurrence: None)
  Receive Date: 20091030
  Receipt Date: 20091026
  Transmission Date: 20100525
  Serious: Yes (Death, Disabling)
  Sender: FDA-Public Use
  Company Number: PHHY2009IT46521

PATIENT
  Sex: Female

DRUGS (1)
  1. AREDIA [Suspect]
     Indication: BREAST CANCER
     Dosage: 90 MG, CYCLIC
     Route: 042
     Dates: start: 19980101, end: 20040730

REACTIONS (3)
  - ALVEOLOPLASTY [None]
  - DEATH [None]
  - OSTEONECROSIS [None]
